FAERS Safety Report 5625812-8 (Version None)
Quarter: 2008Q1

REPORT INFORMATION
  Report Type: 
  Country: None (occurrence: None)
  Receive Date: 20080214
  Receipt Date: 20080204
  Transmission Date: 20080703
  Serious: Yes (Hospitalization)
  Sender: FDA-Public Use
  Company Number: US-ROCHE-545274

PATIENT
  Age: 73 Year
  Sex: Female

DRUGS (9)
  1. BONIVA [Suspect]
     Indication: BODY HEIGHT DECREASED
     Route: 048
     Dates: start: 20070201
  2. SYNTHROID [Concomitant]
  3. NITROGLYCERIN [Concomitant]
  4. DIGITEK [Concomitant]
  5. NEXIUM [Concomitant]
  6. CYMBALTA [Concomitant]
  7. CELEBREX [Concomitant]
     Dosage: STOPPED BECAUSE OF KIDNEY FUNCTION
  8. TRAMADOL HCL [Concomitant]
  9. XANAX [Concomitant]

REACTIONS (5)
  - CARDIAC ARREST [None]
  - DYSPHAGIA [None]
  - HEART RATE INCREASED [None]
  - LOSS OF CONSCIOUSNESS [None]
  - MYOCARDIAL INFARCTION [None]
